FAERS Safety Report 13871231 (Version 1)
Quarter: 2017Q3

REPORT INFORMATION
  Report Type: Spontaneous
  Country: US (occurrence: None)
  Receive Date: 20170814
  Receipt Date: 20170814
  Transmission Date: 20171127
  Serious: Yes (Other)
  Sender: FDA-Public Use
  Company Number: None

PATIENT
  Age: 32 Year
  Sex: Female
  Weight: 70.31 kg

DRUGS (3)
  1. WOMENS DAILY [Concomitant]
  2. NEXPLANON [Suspect]
     Active Substance: ETONOGESTREL
     Dates: start: 20170629
  3. BIOTIN [Concomitant]
     Active Substance: BIOTIN

REACTIONS (5)
  - Alcohol use [None]
  - Imprisonment [None]
  - Aggression [None]
  - Loss of consciousness [None]
  - Blood alcohol increased [None]

NARRATIVE: CASE EVENT DATE: 20170702
